FAERS Safety Report 21172499 (Version 1)
Quarter: 2022Q3

REPORT INFORMATION
  Report Type: Spontaneous
  Country: US (occurrence: None)
  Receive Date: 20220803
  Receipt Date: 20220803
  Transmission Date: 20221026
  Serious: Yes (Other)
  Sender: FDA-Public Use
  Company Number: None

PATIENT
  Age: 28 Year
  Sex: Male
  Weight: 63 kg

DRUGS (5)
  1. OTEZLA [Suspect]
     Active Substance: APREMILAST
     Indication: Psoriasis
     Dosage: FREQUENCY : TWICE A DAY;?
     Route: 048
  2. ketoconazole 2% external cream [Concomitant]
  3. caclipotriene 0.005% external cream [Concomitant]
  4. fluocinolone external ointment 0.025% [Concomitant]
  5. desonide 0.05% external cream [Concomitant]

REACTIONS (3)
  - Abdominal pain [None]
  - Memory impairment [None]
  - Product dose omission in error [None]

NARRATIVE: CASE EVENT DATE: 20220803
